FAERS Safety Report 5096626-5 (Version None)
Quarter: 2006Q3

REPORT INFORMATION
  Report Type: 
  Country: None (occurrence: None)
  Receive Date: 20060831
  Receipt Date: 20060816
  Transmission Date: 20061208
  Serious: Yes (Hospitalization)
  Sender: FDA-Public Use
  Company Number: 2006RR-03483

PATIENT
  Age: 58 Year
  Sex: Female

DRUGS (2)
  1. ASPIRIN [Suspect]
     Indication: MIGRAINE
     Dosage: 75 MG, ORAL
     Route: 048
     Dates: end: 20060625
  2. FLUOXETINE [Suspect]
     Dosage: 20 MG, ORAL
     Route: 048
     Dates: start: 20060525, end: 20060625

REACTIONS (1)
  - GASTROINTESTINAL HAEMORRHAGE [None]
